FAERS Safety Report 18367163 (Version 5)
Quarter: 2021Q1

REPORT INFORMATION
  Report Type: Report from Study
  Country: JP (occurrence: JP)
  Receive Date: 20201009
  Receipt Date: 20210128
  Transmission Date: 20210419
  Serious: Yes (Hospitalization, Other)
  Sender: FDA-Public Use
  Company Number: JP-INCYTE CORPORATION-2017IN010189

PATIENT

DRUGS (8)
  1. JAKAVI [Suspect]
     Active Substance: RUXOLITINIB
     Indication: MYELOFIBROSIS
     Dosage: 5 MG, QD
     Route: 048
     Dates: start: 20170502, end: 20170612
  2. CUBICIN [Concomitant]
     Active Substance: DAPTOMYCIN
     Indication: OPPORTUNISTIC INFECTION PROPHYLAXIS
     Dosage: 350 MG
     Route: 065
     Dates: start: 20191129, end: 20191201
  3. JAKAVI [Suspect]
     Active Substance: RUXOLITINIB
     Dosage: 5 MG, BID
     Route: 048
     Dates: start: 20170613, end: 20171106
  4. JAKAVI [Suspect]
     Active Substance: RUXOLITINIB
     Dosage: 5 MG, BID
     Route: 048
     Dates: start: 20171107
  5. CEFAZOLIN [Concomitant]
     Active Substance: CEFAZOLIN
     Indication: OPPORTUNISTIC INFECTION PROPHYLAXIS
     Dosage: 2 G
     Route: 065
     Dates: start: 20191129, end: 20200203
  6. ZOSYN [Concomitant]
     Active Substance: PIPERACILLIN SODIUM\TAZOBACTAM SODIUM
     Indication: OPPORTUNISTIC INFECTION PROPHYLAXIS
     Dosage: UNK
     Route: 065
     Dates: start: 20200310, end: 20200320
  7. JAKAVI [Suspect]
     Active Substance: RUXOLITINIB
     Dosage: 5 MG, BID
     Route: 048
     Dates: start: 20170613, end: 20171106
  8. JAKAVI [Suspect]
     Active Substance: RUXOLITINIB
     Dosage: 5 MG, BID
     Route: 048
     Dates: start: 20191118

REACTIONS (9)
  - Product use issue [Unknown]
  - Chronic kidney disease [Unknown]
  - Anaemia [Recovering/Resolving]
  - Nephrogenic anaemia [Unknown]
  - Renal impairment [Not Recovered/Not Resolved]
  - Platelet count decreased [Not Recovered/Not Resolved]
  - Haemorrhage [Unknown]
  - Psoas abscess [Recovering/Resolving]
  - Myelosuppression [Unknown]

NARRATIVE: CASE EVENT DATE: 20170502
